FAERS Safety Report 23866366 (Version 2)
Quarter: 2024Q2

REPORT INFORMATION
  Report Type: Spontaneous
  Country: DE (occurrence: None)
  Receive Date: 20240517
  Receipt Date: 20240610
  Transmission Date: 20240716
  Serious: Yes (Other)
  Sender: FDA-Public Use
  Company Number: 2024A113443

PATIENT
  Age: 21228 Day
  Sex: Female

DRUGS (2)
  1. LYNPARZA [Suspect]
     Active Substance: OLAPARIB
     Indication: Leiomyosarcoma metastatic
     Route: 048
  2. TEMOZOLOMIDE [Concomitant]
     Active Substance: TEMOZOLOMIDE

REACTIONS (3)
  - Metastases to liver [Unknown]
  - Off label use [Unknown]
  - Insurance issue [Unknown]

NARRATIVE: CASE EVENT DATE: 20221201
